FAERS Safety Report 12706247 (Version 4)
Quarter: 2016Q4

REPORT INFORMATION
  Report Type: Report from Study
  Country: US (occurrence: US)
  Receive Date: 20160901
  Receipt Date: 20161019
  Transmission Date: 20170207
  Serious: Yes (Hospitalization, Other)
  Sender: FDA-Public Use
  Company Number: US-AMGEN-USASP2016112474

PATIENT
  Age: 65 Year
  Sex: Male

DRUGS (1)
  1. ENBREL [Suspect]
     Active Substance: ETANERCEPT
     Indication: RHEUMATOID ARTHRITIS
     Dosage: UNK UNK, QWK
     Route: 065

REACTIONS (15)
  - Lower limb fracture [Unknown]
  - Injection site discolouration [Unknown]
  - Drug dose omission [Unknown]
  - Femur fracture [Unknown]
  - Anxiety [Unknown]
  - Hepatitis C [Unknown]
  - Arthralgia [Unknown]
  - Hip fracture [Unknown]
  - Pain [Unknown]
  - Injection site bruising [Unknown]
  - Injection site haemorrhage [Unknown]
  - Fall [Unknown]
  - Rheumatoid arthritis [Unknown]
  - Joint crepitation [Unknown]
  - Wrong technique in product usage process [Unknown]

NARRATIVE: CASE EVENT DATE: 2015
